FAERS Safety Report 12701489 (Version 1)
Quarter: 2016Q3

REPORT INFORMATION
  Report Type: Spontaneous
  Country: US (occurrence: US)
  Receive Date: 20160831
  Receipt Date: 20160831
  Transmission Date: 20161109
  Serious: No
  Sender: FDA-Public Use
  Company Number: US-PFIZER INC-2016407963

PATIENT
  Age: 50 Year
  Sex: Female

DRUGS (4)
  1. FLEXERIL [Suspect]
     Active Substance: CYCLOBENZAPRINE HYDROCHLORIDE
     Dosage: UNK
  2. GABAPENTIN. [Suspect]
     Active Substance: GABAPENTIN
     Dosage: UNK
  3. OXYBUTYNIN [Suspect]
     Active Substance: OXYBUTYNIN
     Dosage: UNK
  4. PENICILLIN G [Suspect]
     Active Substance: PENICILLIN G
     Dosage: UNK

REACTIONS (1)
  - Drug hypersensitivity [Unknown]
